FAERS Safety Report 9922747 (Version 1)
Quarter: 2014Q1

REPORT INFORMATION
  Report Type: Spontaneous
  Country: GB (occurrence: GB)
  Receive Date: 20140225
  Receipt Date: 20140225
  Transmission Date: 20141002
  Serious: Yes (Disabling)
  Sender: FDA-Public Use
  Company Number: GB-ACTAVIS-2014-02939

PATIENT
  Age: 52 Year
  Sex: Female
  Weight: 76 kg

DRUGS (3)
  1. DOXYCYCLINE HYCLATE (UNKNOWN) [Suspect]
     Indication: PRODUCT USED FOR UNKNOWN INDICATION
     Dosage: UNK
     Route: 065
     Dates: start: 20140131
  2. DOXYCYCLINE HYCLATE (UNKNOWN) [Suspect]
     Dosage: UNK
     Route: 065
     Dates: start: 20140109, end: 20140116
  3. NAPROXEN [Concomitant]
     Indication: PRODUCT USED FOR UNKNOWN INDICATION
     Dosage: UNK
     Route: 065
     Dates: start: 20140109, end: 20140123

REACTIONS (3)
  - IIIrd nerve injury [Not Recovered/Not Resolved]
  - Diplopia [Unknown]
  - VIth nerve paralysis [Unknown]
